FAERS Safety Report 9299954 (Version 3)
Quarter: 2013Q4

REPORT INFORMATION
  Report Type: Spontaneous
  Country: US (occurrence: None)
  Receive Date: 20130107
  Receipt Date: 20131226
  Transmission Date: 20140711
  Serious: Yes (Other)
  Sender: FDA-Public Use
  Company Number: PHHY2012US102752

PATIENT
  Age: 54 Year
  Sex: Female
  Weight: 61.2 kg

DRUGS (7)
  1. GILENYA [Suspect]
     Indication: MULTIPLE SCLEROSIS
     Route: 048
     Dates: start: 20110405
  2. CALTRATE (CALCIUM CARBONATE) [Concomitant]
  3. AMANTADINE [Concomitant]
  4. MULTI-VIT (VITAMINS NOS) [Concomitant]
  5. LEXAPRO [Concomitant]
  6. TERIPARATIDE [Concomitant]
  7. VITAMIN D (ERGOCALCIFEROL) [Concomitant]

REACTIONS (3)
  - Fall [None]
  - Haemorrhage [None]
  - Balance disorder [None]
